FAERS Safety Report 23880241 (Version 1)
Quarter: 2024Q2

REPORT INFORMATION
  Report Type: Spontaneous
  Country: US (occurrence: None)
  Receive Date: 20240521
  Receipt Date: 20240521
  Transmission Date: 20240716
  Serious: No
  Sender: FDA-Public Use
  Company Number: None

PATIENT
  Age: 14 Year
  Sex: Male

DRUGS (1)
  1. ADBRY [Suspect]
     Active Substance: TRALOKINUMAB-LDRM
     Indication: Dermatitis atopic
     Dosage: INJECT 150MG (1 SYRINGE) SUBCUTANEOUSLY EVERY 2 WEEKS STARTING ON DAY 15  AS DIRECTED
     Route: 058
     Dates: start: 202405

REACTIONS (1)
  - Ear infection [None]
